FAERS Safety Report 4906875-1 (Version None)
Quarter: 2006Q1

REPORT INFORMATION
  Report Type: 
  Country: None (occurrence: None)
  Receive Date: 20060207
  Receipt Date: 20060119
  Transmission Date: 20060701
  Serious: Yes (Hospitalization)
  Sender: FDA-Public Use
  Company Number: IT200601003558

PATIENT
  Age: 63 Year
  Sex: Female

DRUGS (3)
  1. FORTEO [Suspect]
     Indication: OSTEOPOROSIS POSTMENOPAUSAL
     Dosage: 20 UG, DAILY (1/D), SUBCUTANEOUS
     Route: 058
     Dates: start: 20051122, end: 20051214
  2. XANAX                             /USA/(ALPRAZOLAM) [Concomitant]
  3. ELOPRAM                              /ITA/(CITALOPRAM) [Concomitant]

REACTIONS (2)
  - PARAESTHESIA [None]
  - TRANSIENT ISCHAEMIC ATTACK [None]
